FAERS Safety Report 4336027-8 (Version None)
Quarter: 2004Q2

REPORT INFORMATION
  Report Type: 
  Country: None (occurrence: None)
  Receive Date: 20040406
  Receipt Date: 20040324
  Transmission Date: 20050107
  Serious: Yes (Hospitalization)
  Sender: FDA-Public Use
  Company Number: 2004205814FR

PATIENT
  Age: 70 Year
  Sex: Female

DRUGS (8)
  1. CELEBREX [Suspect]
     Indication: POSTOPERATIVE CARE
     Dosage: 200 MG, QD, ORAL
     Route: 048
     Dates: start: 20040112, end: 20040117
  2. ACETAMINOPHEN [Suspect]
     Dosage: 1 G, TID, ORAL
     Route: 048
     Dates: end: 20040117
  3. BROMAZEPAM (BROMAZEPAM) [Suspect]
     Dosage: 0.25 DF, TID, ORAL
     Route: 048
     Dates: end: 20040117
  4. LESCOL [Suspect]
     Dosage: 80 MG, QD, ORAL
     Route: 048
     Dates: end: 20040117
  5. OMEPRAZOLE [Suspect]
     Indication: DIAPHRAGMATIC HERNIA
     Dosage: 20 MG, QD, ORAL
     Route: 048
     Dates: end: 20040117
  6. PADERYL TABLETS (CODEINE HYDROBROMIDE, CINNAMAVERINE, BELLADONNA EXTRA [Suspect]
     Dosage: 1 DF, QD, ORAL
     Route: 048
     Dates: end: 20040117
  7. DEFALGAN CODEINE [Concomitant]
  8. ZOLPIDEM TARTRATE [Concomitant]

REACTIONS (13)
  - ASTHENIA [None]
  - BLOOD PRESSURE SYSTOLIC INCREASED [None]
  - C-REACTIVE PROTEIN INCREASED [None]
  - DIVERTICULUM INTESTINAL HAEMORRHAGIC [None]
  - GASTROINTESTINAL NECROSIS [None]
  - HAEMOGLOBIN DECREASED [None]
  - HIATUS HERNIA [None]
  - INTESTINAL ISCHAEMIA [None]
  - LEUKOCYTOSIS [None]
  - MESENTERIC OCCLUSION [None]
  - PALLOR [None]
  - PLATELET COUNT INCREASED [None]
  - PYREXIA [None]
